FAERS Safety Report 7222800-5 (Version None)
Quarter: 2011Q1

REPORT INFORMATION
  Report Type: 
  Country: None (occurrence: None)
  Receive Date: 20110112
  Receipt Date: 20101230
  Transmission Date: 20110831
  Serious: No
  Sender: FDA-Public Use
  Company Number: US-B.I. PHARMACEUTICALS,INC./RIDGEFIELD-2011-BP-00550BP

PATIENT
  Sex: Male

DRUGS (4)
  1. SINEMET [Concomitant]
  2. MIRAPEX [Suspect]
  3. LEVO [Concomitant]
  4. CARBOPLATIN [Concomitant]

REACTIONS (4)
  - HALLUCINATION [None]
  - ABNORMAL BEHAVIOUR [None]
  - CONFUSIONAL STATE [None]
  - DRUG INEFFECTIVE [None]
